FAERS Safety Report 4551788-0 (Version None)
Quarter: 2005Q1

REPORT INFORMATION
  Report Type: 
  Country: None (occurrence: None)
  Receive Date: 20050113
  Receipt Date: 20050106
  Transmission Date: 20050727
  Serious: Yes (Life-Threatening)
  Sender: FDA-Public Use
  Company Number: GB-GLAXOSMITHKLINE-B0363732A

PATIENT
  Age: 68 Year
  Sex: Male

DRUGS (8)
  1. AVANDAMET [Suspect]
     Indication: DIABETES MELLITUS NON-INSULIN-DEPENDENT
     Dosage: 2TAB TWICE PER DAY
     Route: 048
  2. CLOPIDOGREL [Concomitant]
     Dosage: 75MG PER DAY
     Route: 048
  3. VALPROATE SODIUM [Concomitant]
     Indication: MYOCARDIAL INFARCTION
     Dosage: 300MG TWICE PER DAY
     Route: 048
     Dates: start: 20041222
  4. SIMVASTATIN [Concomitant]
     Dosage: 40MG PER DAY
     Route: 048
  5. GLICLAZIDE [Concomitant]
     Dosage: 160MG TWICE PER DAY
     Route: 048
  6. ENALAPRIL [Concomitant]
     Dosage: 2.5MG PER DAY
     Route: 065
  7. DIPYRIDAMOLE [Concomitant]
     Dosage: 200MG TWICE PER DAY
     Route: 065
  8. LANSOPRAZOLE [Concomitant]
     Dosage: 50MG PER DAY
     Route: 065

REACTIONS (2)
  - CONVULSION [None]
  - MYOCARDIAL INFARCTION [None]
